FAERS Safety Report 12839550 (Version 1)
Quarter: 2016Q4

REPORT INFORMATION
  Report Type: Spontaneous
  Country: US (occurrence: US)
  Receive Date: 20161012
  Receipt Date: 20161012
  Transmission Date: 20170207
  Serious: No
  Sender: FDA-Public Use
  Company Number: None

PATIENT
  Age: 82 Year
  Sex: Male

DRUGS (1)
  1. TAFINLAR [Suspect]
     Active Substance: DABRAFENIB MESYLATE
     Indication: MALIGNANT MELANOMA
     Route: 048
     Dates: start: 20160421, end: 20161012

REACTIONS (4)
  - Discomfort [None]
  - Chest discomfort [None]
  - Sensory disturbance [None]
  - Feeling hot [None]

NARRATIVE: CASE EVENT DATE: 20160912
